FAERS Safety Report 19303596 (Version 1)
Quarter: 2021Q2

REPORT INFORMATION
  Report Type: Spontaneous
  Country: CA (occurrence: CA)
  Receive Date: 20210525
  Receipt Date: 20210525
  Transmission Date: 20210717
  Serious: Yes (Life-Threatening, Hospitalization, Disabling, Other)
  Sender: FDA-Public Use
  Company Number: CA-TEVA-2021-CA-1913741

PATIENT
  Age: 85 Year
  Sex: Male
  Weight: 83 kg

DRUGS (1)
  1. QUETIAPINE. [Suspect]
     Active Substance: QUETIAPINE
     Indication: INSOMNIA
     Route: 048

REACTIONS (9)
  - Balance disorder [Unknown]
  - General physical health deterioration [Unknown]
  - Fall [Unknown]
  - Off label use [Unknown]
  - Infection [Unknown]
  - Parkinsonism [Unknown]
  - Dementia [Unknown]
  - Joint swelling [Unknown]
  - Tremor [Unknown]
